FAERS Safety Report 9782128 (Version 3)
Quarter: 2014Q1

REPORT INFORMATION
  Report Type: Spontaneous
  Country: FR (occurrence: FR)
  Receive Date: 20131226
  Receipt Date: 20140221
  Transmission Date: 20141002
  Serious: Yes (Hospitalization)
  Sender: FDA-Public Use
  Company Number: FR-BRISTOL-MYERS SQUIBB COMPANY-19934470

PATIENT
  Age: 64 Year
  Sex: Male
  Weight: 89 kg

DRUGS (4)
  1. ERBITUX SOLN FOR INF [Suspect]
     Indication: OROPHARYNGEAL CANCER
     Dosage: 04DEC13- 415 MG
     Route: 042
     Dates: start: 20131127
  2. SOLU-MEDROL [Suspect]
     Route: 042
     Dates: start: 20130127, end: 20131204
  3. DOXYCYCLINE [Suspect]
     Indication: ANTIBIOTIC PROPHYLAXIS
     Route: 042
     Dates: start: 20131127, end: 20131204
  4. POLARAMINE [Concomitant]
     Indication: PREMEDICATION

REACTIONS (2)
  - Septic shock [Recovered/Resolved]
  - Diarrhoea haemorrhagic [Recovered/Resolved]
